FAERS Safety Report 5736166-0 (Version None)
Quarter: 2008Q2

REPORT INFORMATION
  Report Type: 
  Country: None (occurrence: None)
  Receive Date: 20080509
  Receipt Date: 20080509
  Transmission Date: 20081010
  Serious: Yes (Life-Threatening, Other)
  Sender: FDA-Public Use
  Company Number: None

PATIENT
  Age: 51 Year
  Sex: Female

DRUGS (1)
  1. PLAVIX [Suspect]
     Dosage: 75 MG PO DAILY
     Route: 048
     Dates: start: 20071107

REACTIONS (1)
  - NEUTROPENIA [None]
